FAERS Safety Report 6221186-2 (Version None)
Quarter: 2009Q2

REPORT INFORMATION
  Report Type: 
  Country: None (occurrence: None)
  Receive Date: 20090605
  Receipt Date: 20090527
  Transmission Date: 20091009
  Serious: Yes (Hospitalization, Other)
  Sender: FDA-Public Use
  Company Number: FR-WYE-G03749809

PATIENT
  Age: 13 Year
  Sex: Female

DRUGS (3)
  1. EFFEXOR [Suspect]
     Dosage: OVERDOSE AMOUNT WAS 30 DOSE FORMS ORAL
     Route: 048
     Dates: start: 20090410, end: 20090410
  2. ADVIL (IBUPROFEN, UNSPEC, 0) [Suspect]
     Dosage: OVERDOSE AMOUNT WAS UNKNOWN ORAL
     Route: 048
     Dates: start: 20090410, end: 20090410
  3. ACETAMINOPHEN [Suspect]
     Dosage: OVERDOSE AMOUNT WAS UNKNOWN ORAL
     Route: 048
     Dates: start: 20090410, end: 20090410

REACTIONS (7)
  - ABDOMINAL PAIN [None]
  - INTENTIONAL OVERDOSE [None]
  - INTENTIONAL SELF-INJURY [None]
  - RENAL FAILURE ACUTE [None]
  - SKIN LACERATION [None]
  - TONIC CONVULSION [None]
  - VISION BLURRED [None]
